FAERS Safety Report 9353329 (Version 2)
Quarter: 2013Q3

REPORT INFORMATION
  Report Type: Spontaneous
  Country: US (occurrence: US)
  Receive Date: 20130618
  Receipt Date: 20130801
  Transmission Date: 20140515
  Serious: Yes (Hospitalization, Other)
  Sender: FDA-Public Use
  Company Number: US-BAYER-2013-072026

PATIENT
  Age: 34 Year
  Sex: Female
  Weight: 81.63 kg

DRUGS (4)
  1. YASMIN [Suspect]
     Dosage: UNK
     Dates: start: 200505, end: 200606
  2. ZITHROMAX [Concomitant]
  3. ASCORBIC ACID [Concomitant]
  4. NAPROXEN [Concomitant]

REACTIONS (10)
  - Pulmonary embolism [None]
  - Deep vein thrombosis [None]
  - Myocardial infarction [None]
  - Cerebrovascular accident [None]
  - Gallbladder disorder [None]
  - Pain [None]
  - Injury [None]
  - Mental disorder [None]
  - Subclavian vein thrombosis [None]
  - Deep vein thrombosis [None]
